FAERS Safety Report 22023586 (Version 1)
Quarter: 2023Q1

REPORT INFORMATION
  Report Type: Spontaneous
  Country: US (occurrence: US)
  Receive Date: 20230223
  Receipt Date: 20230223
  Transmission Date: 20230418
  Serious: Yes (Hospitalization, Other)
  Sender: FDA-Public Use
  Company Number: US-SUN PHARMACEUTICAL INDUSTRIES LTD-2023R1-379880

PATIENT
  Age: 18 Year
  Sex: Female

DRUGS (1)
  1. CLONIDINE [Suspect]
     Active Substance: CLONIDINE
     Indication: Insomnia
     Dosage: 0.2 MILLIGRAM (SEVEN TO FIFTEEN PILLS TOTAL)
     Route: 065

REACTIONS (10)
  - Paradoxical drug reaction [Recovered/Resolved]
  - Tachycardia [Recovered/Resolved]
  - Overdose [Unknown]
  - Asthenia [Recovered/Resolved]
  - Encephalopathy [Recovered/Resolved]
  - Hypertension [Recovered/Resolved]
  - Sinus tachycardia [Recovered/Resolved]
  - Electrocardiogram T wave abnormal [Recovered/Resolved]
  - Hypotension [Recovered/Resolved]
  - Bradycardia [Recovered/Resolved]
